FAERS Safety Report 8164238-2 (Version None)
Quarter: 2012Q1

REPORT INFORMATION
  Report Type: 
  Country: None (occurrence: None)
  Receive Date: 20120224
  Receipt Date: 20111207
  Transmission Date: 20120608
  Serious: No
  Sender: FDA-Public Use
  Company Number: US-ASTRAZENECA-2011SE74357

PATIENT
  Sex: Female

DRUGS (3)
  1. VIMOVO [Suspect]
     Route: 048
  2. TEN OTHER MEDICATIONS [Concomitant]
  3. VICODIN [Concomitant]
     Indication: KNEE OPERATION

REACTIONS (3)
  - SPINAL COLUMN STENOSIS [None]
  - INTERVERTEBRAL DISC PROTRUSION [None]
  - PRURITUS [None]
